FAERS Safety Report 5284186-5 (Version None)
Quarter: 2007Q1

REPORT INFORMATION
  Report Type: 
  Country: None (occurrence: None)
  Receive Date: 20070328
  Receipt Date: 20070313
  Transmission Date: 20070707
  Serious: Yes (Hospitalization, Other)
  Sender: FDA-Public Use
  Company Number: 2007RL000121

PATIENT

DRUGS (1)
  1. RYTHMOL [Suspect]
     Dosage: BID;PO
     Route: 048

REACTIONS (3)
  - ARTERIAL STENT INSERTION [None]
  - CARDIAC STRESS TEST ABNORMAL [None]
  - CHEST PAIN [None]
